FAERS Safety Report 12811456 (Version 4)
Quarter: 2018Q1

REPORT INFORMATION
  Report Type: Report from Study
  Country: US (occurrence: US)
  Receive Date: 20161005
  Receipt Date: 20180118
  Transmission Date: 20180508
  Serious: Yes (Hospitalization, Other)
  Sender: FDA-Public Use
  Company Number: US-SA-2016SA174372

PATIENT
  Age: 56 Year
  Sex: Male

DRUGS (1)
  1. LEMTRADA [Suspect]
     Active Substance: ALEMTUZUMAB
     Indication: MULTIPLE SCLEROSIS
     Route: 041
     Dates: start: 20160824, end: 20160826

REACTIONS (13)
  - Urinary tract infection [Not Recovered/Not Resolved]
  - Staphylococcal infection [Unknown]
  - Thyroid function test abnormal [Not Recovered/Not Resolved]
  - Feeling abnormal [Recovered/Resolved]
  - Asthenia [Not Recovered/Not Resolved]
  - Musculoskeletal pain [Unknown]
  - Pneumonia staphylococcal [Unknown]
  - Pain in extremity [Unknown]
  - Back pain [Unknown]
  - Myalgia [Unknown]
  - Gait disturbance [Unknown]
  - Cough [Not Recovered/Not Resolved]
  - Dyspnoea [Not Recovered/Not Resolved]

NARRATIVE: CASE EVENT DATE: 2016
